FAERS Safety Report 7828700-1 (Version None)
Quarter: 2011Q4

REPORT INFORMATION
  Report Type: 
  Country: None (occurrence: None)
  Receive Date: 20111020
  Receipt Date: 20111013
  Transmission Date: 20120403
  Serious: Yes (Death)
  Sender: FDA-Public Use
  Company Number: US-UCBSA-043359

PATIENT
  Age: 62 Year
  Sex: Male
  Weight: 97.272 kg

DRUGS (6)
  1. PREDNISONE [Concomitant]
     Indication: COLITIS ULCERATIVE
     Route: 048
     Dates: start: 20110927, end: 20111012
  2. AZATHIOPRINE [Concomitant]
     Indication: COLITIS ULCERATIVE
     Route: 048
     Dates: start: 20110823, end: 20111012
  3. CIMZIA [Suspect]
     Indication: COLITIS ULCERATIVE
     Dosage: SELF ADMINISTRATION
     Route: 058
     Dates: start: 20111009, end: 20111012
  4. PANTOPRAZOLE [Concomitant]
     Indication: COLITIS ULCERATIVE
     Route: 048
     Dates: start: 20110831, end: 20111012
  5. LIALDA [Concomitant]
     Route: 048
     Dates: start: 20110831, end: 20111010
  6. NYSTATIN [Concomitant]
     Indication: ORAL CANDIDIASIS
     Dosage: 1 TSP FOUR TIMES DAILY, DAILY DOSE: 4 TSP
     Route: 048
     Dates: start: 20110823

REACTIONS (1)
  - MYOCARDIAL INFARCTION [None]
